FAERS Safety Report 7346314-7 (Version None)
Quarter: 2011Q1

REPORT INFORMATION
  Report Type: 
  Country: None (occurrence: None)
  Receive Date: 20110311
  Receipt Date: 20101209
  Transmission Date: 20110831
  Serious: No
  Sender: FDA-Public Use
  Company Number: A0898892A

PATIENT
  Age: 6 Month
  Sex: Male

DRUGS (1)
  1. VUSION [Suspect]
     Dosage: 2APP PER DAY
     Route: 061

REACTIONS (2)
  - RASH ERYTHEMATOUS [None]
  - RASH PAPULAR [None]
